FAERS Safety Report 12806414 (Version 1)
Quarter: 2016Q4

REPORT INFORMATION
  Report Type: Spontaneous
  Country: US (occurrence: US)
  Receive Date: 20161004
  Receipt Date: 20161004
  Transmission Date: 20170207
  Serious: Yes (Disabling)
  Sender: FDA-Public Use
  Company Number: None

PATIENT

DRUGS (4)
  1. NARDIL [Concomitant]
     Active Substance: PHENELZINE SULFATE
  2. PHENELZINE SULPHATE (GENERIC FOR NARDIL) [Suspect]
     Active Substance: PHENELZINE SULFATE
     Indication: DEPRESSION
     Dosage: 15MG 3 PER DAY MOUTH
     Route: 048
     Dates: start: 1996
  3. VITAMINS [Concomitant]
     Active Substance: VITAMINS
  4. BENADRYL [Concomitant]
     Active Substance: DIPHENHYDRAMINE HYDROCHLORIDE

REACTIONS (4)
  - Rash [None]
  - Anosmia [None]
  - Ageusia [None]
  - Pruritus [None]
